FAERS Safety Report 7338235-0 (Version None)
Quarter: 2011Q1

REPORT INFORMATION
  Report Type: 
  Country: None (occurrence: None)
  Receive Date: 20110308
  Receipt Date: 20110221
  Transmission Date: 20110831
  Serious: Yes (Other)
  Sender: FDA-Public Use
  Company Number: PHHY2011GR16899

PATIENT
  Age: 80 Year
  Sex: Male

DRUGS (1)
  1. LORAZEPAM [Suspect]

REACTIONS (1)
  - DELIRIUM [None]
